FAERS Safety Report 5464527-6 (Version None)
Quarter: 2007Q3

REPORT INFORMATION
  Report Type: 
  Country: None (occurrence: None)
  Receive Date: 20070921
  Receipt Date: 20070910
  Transmission Date: 20080115
  Serious: No
  Sender: FDA-Public Use
  Company Number: US-BOEHRINGER INGELHEIM PHARMACEUTICALS, INC.-2007-BP-21015PF

PATIENT
  Sex: Female
  Weight: 58 kg

DRUGS (4)
  1. SPIRIVA [Suspect]
     Route: 055
  2. CHANTIX [Concomitant]
     Indication: SMOKING CESSATION THERAPY
     Route: 048
     Dates: start: 20070825
  3. BLOOD PRESSURE MEDICATIONS [Concomitant]
  4. LAMISIL [Concomitant]

REACTIONS (2)
  - DRY MOUTH [None]
  - NASAL DRYNESS [None]
